FAERS Safety Report 9820214 (Version 2)
Quarter: 2014Q1

REPORT INFORMATION
  Report Type: Spontaneous
  Country: BR (occurrence: BR)
  Receive Date: 20140116
  Receipt Date: 20140127
  Transmission Date: 20141002
  Serious: Yes (Death, Hospitalization)
  Sender: FDA-Public Use
  Company Number: BR-BAYER-2014-007152

PATIENT
  Sex: Male

DRUGS (1)
  1. NEXAVAR [Suspect]
     Dosage: UNK
     Route: 048
     Dates: start: 201311, end: 201311

REACTIONS (2)
  - Hepatic cancer [Fatal]
  - Hospitalisation [None]
